FAERS Safety Report 5251085-4 (Version None)
Quarter: 2007Q1

REPORT INFORMATION
  Report Type: 
  Country: None (occurrence: None)
  Receive Date: 20070228
  Receipt Date: 20060823
  Transmission Date: 20070707
  Serious: No
  Sender: FDA-Public Use
  Company Number: US-GLAXOSMITHKLINE-A0617812A

PATIENT
  Age: 68 Year
  Sex: Male

DRUGS (6)
  1. LAMICTAL [Suspect]
     Indication: NEUROPATHY
     Dosage: 5MG PER DAY
     Route: 048
     Dates: start: 20060821
  2. COUMADIN [Concomitant]
  3. COREG [Concomitant]
  4. PLAVIX [Concomitant]
  5. INSULIN [Concomitant]
  6. PHOSLO [Concomitant]

REACTIONS (2)
  - INTERNATIONAL NORMALISED RATIO INCREASED [None]
  - PRURITUS [None]
